FAERS Safety Report 9114110 (Version 1)
Quarter: 2013Q1

REPORT INFORMATION
  Report Type: Spontaneous
  Country: IE (occurrence: IE)
  Receive Date: 20130208
  Receipt Date: 20130208
  Transmission Date: 20140127
  Serious: Yes (Congenital Anomaly, Other)
  Sender: FDA-Public Use
  Company Number: IE-PFIZER INC-2012135662

PATIENT
  Sex: Male
  Weight: 1.51 kg

DRUGS (1)
  1. CHAMPIX [Suspect]
     Indication: SMOKING CESSATION THERAPY
     Dosage: STANDARD DOSING
     Route: 064
     Dates: start: 20120105, end: 20120405

REACTIONS (6)
  - Premature baby [Unknown]
  - Neonatal respiratory distress syndrome [Unknown]
  - Inguinal hernia [Unknown]
  - Lung disorder [Unknown]
  - Patent ductus arteriosus [Unknown]
  - Maternal exposure during pregnancy [Unknown]
